FAERS Safety Report 7784092-8 (Version None)
Quarter: 2011Q3

REPORT INFORMATION
  Report Type: 
  Country: None (occurrence: None)
  Receive Date: 20110928
  Receipt Date: 20110618
  Transmission Date: 20111222
  Serious: No
  Sender: FDA-Public Use
  Company Number: US-BAYER-2011-054131

PATIENT
  Sex: Female

DRUGS (4)
  1. ALEVE (CAPLET) [Suspect]
     Indication: MYALGIA
     Route: 048
  2. IBUPROFEN (ADVIL) [Interacting]
     Indication: PAIN
     Route: 048
  3. ICY HOT [Interacting]
     Indication: PAIN
     Route: 061
  4. IBUPROFEN W/15MG CODEINE [Interacting]
     Indication: PAIN
     Route: 048

REACTIONS (1)
  - PAIN [None]
